FAERS Safety Report 7056196-9 (Version None)
Quarter: 2010Q4

REPORT INFORMATION
  Report Type: 
  Country: None (occurrence: None)
  Receive Date: 20101021
  Receipt Date: 20101011
  Transmission Date: 20110411
  Serious: Yes (Hospitalization)
  Sender: FDA-Public Use
  Company Number: IL-PERRIGO-10IL013775

PATIENT
  Age: 58 Year
  Sex: Male

DRUGS (1)
  1. NAPROXEN RX 250 MG 121 [Suspect]
     Dosage: UNK
     Route: 048

REACTIONS (2)
  - GASTROINTESTINAL HAEMORRHAGE [None]
  - LEUKOCYTOCLASTIC VASCULITIS [None]
